FAERS Safety Report 7164028-3 (Version None)
Quarter: 2010Q4

REPORT INFORMATION
  Report Type: 
  Country: None (occurrence: None)
  Receive Date: 20101215
  Receipt Date: 20101207
  Transmission Date: 20110411
  Serious: Yes (Hospitalization)
  Sender: FDA-Public Use
  Company Number: B0612592A

PATIENT
  Sex: Female
  Weight: 49.5 kg

DRUGS (5)
  1. PAZOPANIB [Suspect]
     Indication: SARCOMA
     Dosage: 800MG PER DAY
     Route: 048
     Dates: start: 20091102, end: 20091120
  2. INFUMORPH [Concomitant]
     Indication: PAIN
     Dosage: 30MG TWICE PER DAY
     Route: 048
     Dates: start: 20090901
  3. AMITRIPTYLINE [Concomitant]
     Indication: PAIN
     Dosage: 25MG PER DAY
     Route: 048
     Dates: start: 20090901
  4. FRAGMIN [Concomitant]
     Indication: DEEP VEIN THROMBOSIS
     Dosage: 10000IU PER DAY
     Route: 058
     Dates: start: 20090610, end: 20091130
  5. FLUOXETINE [Concomitant]
     Indication: DEPRESSION
     Dosage: 30MG PER DAY
     Route: 048
     Dates: start: 20090901

REACTIONS (6)
  - ANAEMIA [None]
  - DISEASE PROGRESSION [None]
  - DYSPNOEA [None]
  - DYSPNOEA EXERTIONAL [None]
  - HAEMATURIA [None]
  - SUPRAPUBIC PAIN [None]
